FAERS Safety Report 4773008-4 (Version None)
Quarter: 2005Q3

REPORT INFORMATION
  Report Type: 
  Country: None (occurrence: None)
  Receive Date: 20050916
  Receipt Date: 20050901
  Transmission Date: 20060218
  Serious: Yes (Hospitalization)
  Sender: FDA-Public Use
  Company Number: 02100-JPN-05-0430

PATIENT
  Age: 85 Year
  Sex: Male

DRUGS (8)
  1. CILOSTAZOL [Suspect]
     Indication: CEREBRAL INFARCTION
     Dosage: 200 MG ORAL
     Route: 048
     Dates: start: 20040702, end: 20050609
  2. IBUDILAST [Suspect]
     Dosage: 30 MG ORAL
     Route: 048
     Dates: start: 20040702, end: 20050609
  3. ASPIRIN DIALUMINATE [Concomitant]
  4. NICERGOLINE [Concomitant]
  5. SULPIRIDE [Concomitant]
  6. RABEPRAZOLE SODIUM [Concomitant]
  7. NAPROXEN SODIUM [Concomitant]
  8. MISOPROSTOL [Concomitant]

REACTIONS (7)
  - ARTHRALGIA [None]
  - CEREBRAL INFARCTION [None]
  - DISEASE RECURRENCE [None]
  - INFLAMMATION [None]
  - LIVER DISORDER [None]
  - PNEUMONIA [None]
  - PYREXIA [None]
